FAERS Safety Report 22787825 (Version 10)
Quarter: 2023Q4

REPORT INFORMATION
  Report Type: Report from Study
  Country: US (occurrence: US)
  Receive Date: 20230804
  Receipt Date: 20231212
  Transmission Date: 20240110
  Serious: Yes (Hospitalization, Other)
  Sender: FDA-Public Use
  Company Number: US-ARGENX-2022-ARGX-US001165

PATIENT

DRUGS (8)
  1. VYVGART [Suspect]
     Active Substance: EFGARTIGIMOD ALFA-FCAB
     Indication: Myasthenia gravis
     Dosage: UNK
     Route: 042
     Dates: start: 20220215
  2. GABAPENTIN [Concomitant]
     Active Substance: GABAPENTIN
     Indication: Neuralgia
     Dosage: 300 MG, TID
     Route: 065
     Dates: start: 202301
  3. GABAPENTIN [Concomitant]
     Active Substance: GABAPENTIN
     Dosage: 300 MG, DAILY AT BED TOME
     Dates: end: 202307
  4. MESTINON [Concomitant]
     Active Substance: PYRIDOSTIGMINE BROMIDE
     Indication: Product used for unknown indication
     Dosage: UNK
     Dates: start: 202207
  5. MESTINON [Concomitant]
     Active Substance: PYRIDOSTIGMINE BROMIDE
     Dosage: EVERY 4 HOURS TO DATE
  6. PREDNISONE [Concomitant]
     Active Substance: PREDNISONE
     Indication: Product used for unknown indication
     Dosage: UNK
     Dates: start: 202203, end: 20220617
  7. PREDNISONE [Concomitant]
     Active Substance: PREDNISONE
     Dosage: UNK, 2/WEEK
  8. CELLCEPT [Concomitant]
     Active Substance: MYCOPHENOLATE MOFETIL
     Indication: Product used for unknown indication
     Dosage: UNK
     Dates: start: 20220604

REACTIONS (39)
  - Spinal cord compression [Recovering/Resolving]
  - Basal cell carcinoma [Recovering/Resolving]
  - Skin flap necrosis [Unknown]
  - Symptom recurrence [Recovering/Resolving]
  - Vision blurred [Not Recovered/Not Resolved]
  - Ear pain [Not Recovered/Not Resolved]
  - Fatigue [Not Recovered/Not Resolved]
  - COVID-19 [Recovered/Resolved]
  - Nasopharyngitis [Unknown]
  - Ear infection [Not Recovered/Not Resolved]
  - Urinary tract infection [Not Recovered/Not Resolved]
  - Product dose omission issue [Unknown]
  - Dysphagia [Unknown]
  - Dysphonia [Recovering/Resolving]
  - Dysgeusia [Unknown]
  - Parosmia [Unknown]
  - Restless legs syndrome [Unknown]
  - Diplopia [Recovering/Resolving]
  - Muscle twitching [Not Recovered/Not Resolved]
  - Insomnia [Unknown]
  - Presyncope [Unknown]
  - Diarrhoea [Unknown]
  - Weight increased [Unknown]
  - Eyelid ptosis [Recovering/Resolving]
  - Pain [Recovering/Resolving]
  - Inappropriate schedule of product administration [Unknown]
  - Myasthenia gravis [Recovering/Resolving]
  - Visual impairment [Unknown]
  - Back pain [Recovering/Resolving]
  - Back injury [Recovering/Resolving]
  - Erythema of eyelid [Recovering/Resolving]
  - Eyelids pruritus [Recovering/Resolving]
  - Sciatica [Recovering/Resolving]
  - Myasthenia gravis [Unknown]
  - Asthenia [Recovering/Resolving]
  - Herpes zoster [Recovered/Resolved]
  - Ear discomfort [Recovering/Resolving]
  - Immunodeficiency [Recovering/Resolving]
  - Somnolence [Recovering/Resolving]

NARRATIVE: CASE EVENT DATE: 20220702
